FAERS Safety Report 4423419-1 (Version None)
Quarter: 2004Q3

REPORT INFORMATION
  Report Type: 
  Country: None (occurrence: None)
  Receive Date: 20040713
  Receipt Date: 20040318
  Transmission Date: 20050211
  Serious: No
  Sender: FDA-Public Use
  Company Number: PHEH2004US03189

PATIENT
  Age: 71 Year
  Sex: Female

DRUGS (1)
  1. ELIDEL [Suspect]
     Indication: SKIN DISORDER
     Dosage: QD, TOPICAL
     Route: 061
     Dates: start: 20040317

REACTIONS (2)
  - APPLICATION SITE BURNING [None]
  - SKIN BURNING SENSATION [None]
